FAERS Safety Report 5542841-3 (Version None)
Quarter: 2007Q4

REPORT INFORMATION
  Report Type: 
  Country: None (occurrence: None)
  Receive Date: 20071210
  Receipt Date: 20070927
  Transmission Date: 20080405
  Serious: No
  Sender: FDA-Public Use
  Company Number: US-AMGEN-KDL244454

PATIENT
  Sex: Female
  Weight: 73.5 kg

DRUGS (13)
  1. ENBREL [Suspect]
     Indication: RHEUMATOID ARTHRITIS
     Route: 058
     Dates: start: 20070920
  2. GLUCOPHAGE [Concomitant]
  3. INSULIN [Concomitant]
  4. UNSPECIFIED MEDICATION [Concomitant]
  5. HYZAAR [Concomitant]
  6. PLAVIX [Concomitant]
  7. FESOFOR [Concomitant]
  8. FOSAMAX [Concomitant]
  9. PRILOSEC [Concomitant]
  10. ALBUTEROL [Concomitant]
  11. LASIX [Concomitant]
  12. PREMARIN [Concomitant]
  13. FOLIC ACID [Concomitant]

REACTIONS (1)
  - INJECTION SITE PAIN [None]
